FAERS Safety Report 6759470-6 (Version None)
Quarter: 2010Q2

REPORT INFORMATION
  Report Type: 
  Country: None (occurrence: None)
  Receive Date: 20100603
  Receipt Date: 20100517
  Transmission Date: 20101027
  Serious: Yes (Other)
  Sender: FDA-Public Use
  Company Number: 1-22648447

PATIENT
  Age: 34 Year
  Sex: Male

DRUGS (4)
  1. PREDNISOLONE [Suspect]
     Indication: ANTIEMETIC SUPPORTIVE CARE
     Dosage: }420 MG
  2. ETOPOSIDE [Suspect]
     Indication: CHEMOTHERAPY
     Dosage: 100 MG/M^2/DAY/5 DAY CYCLES X 3 CYCLES
  3. CISPLATIN [Suspect]
     Indication: CHEMOTHERAPY
     Dosage: 20 MG/M^2/DAY/5 DAY CYCLES X 3 CYCLES
  4. BLEOMYCIN [Suspect]
     Indication: CHEMOTHERAPY
     Dosage: 30 MG/DAY/CYCLE DAYS 1, 8, AND 15

REACTIONS (2)
  - ARTERIAL THROMBOSIS LIMB [None]
  - PERIPHERAL ISCHAEMIA [None]
